FAERS Safety Report 4296502-1 (Version None)
Quarter: 2004Q1

REPORT INFORMATION
  Report Type: 
  Country: None (occurrence: None)
  Receive Date: 20040126
  Receipt Date: 20031031
  Transmission Date: 20041129
  Serious: No
  Sender: FDA-Public Use
  Company Number: USA030845043

PATIENT
  Age: 13 Year
  Sex: Female
  Weight: 38 kg

DRUGS (1)
  1. STRATTERA [Suspect]
     Dosage: 40 MG/BID DAY
     Dates: start: 20030601

REACTIONS (5)
  - EXCITABILITY [None]
  - LOGORRHOEA [None]
  - PRESCRIBED OVERDOSE [None]
  - PSYCHOMOTOR HYPERACTIVITY [None]
  - REBOUND EFFECT [None]
